FAERS Safety Report 4997924-3 (Version None)
Quarter: 2006Q2

REPORT INFORMATION
  Report Type: 
  Country: None (occurrence: None)
  Receive Date: 20060510
  Receipt Date: 20060508
  Transmission Date: 20061013
  Serious: Yes (Death)
  Sender: FDA-Public Use
  Company Number: JP-AVENTIS-200611403JP

PATIENT
  Sex: Male

DRUGS (2)
  1. TAXOTERE [Suspect]
     Indication: GASTRIC CANCER
     Route: 041
     Dates: start: 20051101
  2. ALL OTHER THERAPEUTIC PRODUCTS [Concomitant]
     Indication: GASTRIC CANCER

REACTIONS (1)
  - RESPIRATORY FAILURE [None]
